FAERS Safety Report 9714217 (Version 2)
Quarter: 2013Q4

REPORT INFORMATION
  Report Type: Spontaneous
  Country: US (occurrence: US)
  Receive Date: 20131126
  Receipt Date: 20131126
  Transmission Date: 20140711
  Serious: No
  Sender: FDA-Public Use
  Company Number: US-GILEAD-2008-0019287

PATIENT
  Sex: Female
  Weight: 88 kg

DRUGS (11)
  1. LETAIRIS [Suspect]
     Indication: PULMONARY ARTERIAL HYPERTENSION
     Route: 048
     Dates: start: 20080301
  2. ADVAIR [Concomitant]
     Indication: ASTHMA
  3. ALBUTEROL [Concomitant]
     Indication: ASTHMA
  4. XOPENEX [Concomitant]
     Indication: ASTHMA
  5. NASONEX [Concomitant]
     Indication: RHINITIS ALLERGIC
  6. HYDROXYZINE [Concomitant]
     Indication: RHINITIS ALLERGIC
  7. CLONAZEPAM [Concomitant]
     Indication: ANXIETY
  8. SYNTHROID [Concomitant]
     Indication: HYPOTHYROIDISM
  9. PROTONIX [Concomitant]
     Indication: GASTROOESOPHAGEAL REFLUX DISEASE
  10. APRI [Concomitant]
  11. MULTIVITAMIN [Concomitant]

REACTIONS (1)
  - Liver function test abnormal [None]
